FAERS Safety Report 11915130 (Version 3)
Quarter: 2016Q1

REPORT INFORMATION
  Report Type: Spontaneous
  Country: GB (occurrence: GB)
  Receive Date: 20160114
  Receipt Date: 20160209
  Transmission Date: 20160526
  Serious: Yes (Other)
  Sender: FDA-Public Use
  Company Number: GB-PIERRE FABRE-1046477

PATIENT
  Age: 82 Year
  Sex: Female

DRUGS (4)
  1. NEULASTA [Suspect]
     Active Substance: PEGFILGRASTIM
  2. NAVELBINE [Suspect]
     Active Substance: VINORELBINE TARTRATE
     Indication: PRODUCT USED FOR UNKNOWN INDICATION
     Route: 048
  3. HERCEPTIN [Suspect]
     Active Substance: TRASTUZUMAB
  4. PERJETA [Suspect]
     Active Substance: PERTUZUMAB
     Route: 042

REACTIONS (14)
  - Rash macular [Unknown]
  - Pain in extremity [Unknown]
  - Cellulitis [Unknown]
  - Oral pain [Unknown]
  - Post-traumatic stress disorder [Unknown]
  - Axillary pain [Unknown]
  - Malignant neoplasm progression [Unknown]
  - Dry skin [Unknown]
  - Dry mouth [None]
  - Muscle spasms [Unknown]
  - Alopecia [Unknown]
  - Mouth ulceration [None]
  - Tongue ulceration [None]
  - Toxicity to various agents [Unknown]
